FAERS Safety Report 6875953-2 (Version None)
Quarter: 2010Q2

REPORT INFORMATION
  Report Type: 
  Country: None (occurrence: None)
  Receive Date: 20100616
  Receipt Date: 20100330
  Transmission Date: 20101027
  Serious: No
  Sender: FDA-Public Use
  Company Number: DSA_42866_2010

PATIENT
  Sex: Female

DRUGS (1)
  1. XENAZINE [Suspect]
     Indication: HUNTINGTON'S CHOREA
     Dosage: (HALF A TABLET TID ORAL)
     Route: 048

REACTIONS (3)
  - DRUG ADMINISTRATION ERROR [None]
  - SEDATION [None]
  - THROMBOCYTOPENIA [None]
